FAERS Safety Report 5448894-5 (Version None)
Quarter: 2007Q3

REPORT INFORMATION
  Report Type: 
  Country: None (occurrence: None)
  Receive Date: 20070911
  Receipt Date: 20070820
  Transmission Date: 20080115
  Serious: No
  Sender: FDA-Public Use
  Company Number: US-BRISTOL-MYERS SQUIBB COMPANY-13883046

PATIENT
  Age: 46 Year
  Sex: Female
  Weight: 82 kg

DRUGS (11)
  1. EMSAM [Suspect]
     Indication: BIPOLAR DISORDER
     Route: 062
  2. LEVOTHYROXINE SODIUM [Concomitant]
  3. AFEDITAB [Concomitant]
  4. MAXIDEX [Concomitant]
  5. POTASSIUM CHLORIDE [Concomitant]
  6. LAMICTAL [Concomitant]
  7. LITHIUM CARBONATE [Concomitant]
  8. PLAQUENIL [Concomitant]
  9. SEROQUEL [Concomitant]
  10. VIVELLE [Concomitant]
  11. FOSAMAX [Concomitant]

REACTIONS (1)
  - APPLICATION SITE REACTION [None]
